FAERS Safety Report 7052099-4 (Version None)
Quarter: 2010Q4

REPORT INFORMATION
  Report Type: 
  Country: None (occurrence: None)
  Receive Date: 20101019
  Receipt Date: 20101005
  Transmission Date: 20110411
  Serious: Yes (Hospitalization)
  Sender: FDA-Public Use
  Company Number: PHHY2010MX67131

PATIENT
  Sex: Male

DRUGS (1)
  1. DIOVAN HCT [Suspect]
     Indication: HYPERTENSION
     Dosage: 160/25 MG, ONE TABLET, DAILY
     Route: 048
     Dates: start: 20060101

REACTIONS (2)
  - DISLOCATION OF VERTEBRA [None]
  - SURGERY [None]
